FAERS Safety Report 4726257-5 (Version None)
Quarter: 2005Q3

REPORT INFORMATION
  Report Type: 
  Country: None (occurrence: None)
  Receive Date: 20050725
  Receipt Date: 20050712
  Transmission Date: 20060218
  Serious: Yes (Hospitalization, Other)
  Sender: FDA-Public Use
  Company Number: HQWYE485315JUN05

PATIENT
  Age: 56 Year
  Sex: Male

DRUGS (10)
  1. RAPAMUNE [Suspect]
     Indication: PROPHYLAXIS AGAINST TRANSPLANT REJECTION
     Dosage: 4 MG 1X PER 1 DAY; 3 MG 1X PER 1 DAY; 4 MG 1X PER 1 DAY
     Route: 048
     Dates: start: 20050214, end: 20050101
  2. RAPAMUNE [Suspect]
     Indication: PROPHYLAXIS AGAINST TRANSPLANT REJECTION
     Dosage: 4 MG 1X PER 1 DAY; 3 MG 1X PER 1 DAY; 4 MG 1X PER 1 DAY
     Route: 048
     Dates: start: 20050507, end: 20050524
  3. RAPAMUNE [Suspect]
     Indication: PROPHYLAXIS AGAINST TRANSPLANT REJECTION
     Dosage: 4 MG 1X PER 1 DAY; 3 MG 1X PER 1 DAY; 4 MG 1X PER 1 DAY
     Route: 048
     Dates: start: 20050525
  4. CYCLOSPORINE [Concomitant]
  5. PREDNISONE [Concomitant]
  6. SULFAMETHOXAZOLE + TRIMETHOPRIM [Concomitant]
  7. ATENOLOL [Concomitant]
  8. OMEPRAZOLE [Concomitant]
  9. NITROFURANTOIN [Concomitant]
  10. ASPIRIN [Concomitant]

REACTIONS (1)
  - DIABETES MELLITUS [None]
